FAERS Safety Report 8594250-0 (Version None)
Quarter: 2012Q3

REPORT INFORMATION
  Report Type: 
  Country: None (occurrence: None)
  Receive Date: 20120815
  Receipt Date: 20120809
  Transmission Date: 20120928
  Serious: No
  Sender: FDA-Public Use
  Company Number: US-009507513-1208USA004659

PATIENT

DRUGS (8)
  1. PAXIL [Concomitant]
  2. CLONIDINE [Concomitant]
  3. PERIACTIN [Concomitant]
  4. CLARITIN [Concomitant]
     Route: 048
  5. ARTANE [Concomitant]
  6. VYVANSE [Concomitant]
  7. SAPHRIS [Suspect]
     Indication: SCHIZOPHRENIA
     Dosage: 5 MG, BID
     Route: 060
     Dates: start: 20120724, end: 20120804
  8. LURASIDONE HYDROCHLORIDE [Concomitant]

REACTIONS (1)
  - AKATHISIA [None]
